FAERS Safety Report 8997540 (Version 4)
Quarter: 2014Q2

REPORT INFORMATION
  Report Type: Spontaneous
  Country: US (occurrence: US)
  Receive Date: 20130104
  Receipt Date: 20140627
  Transmission Date: 20141212
  Serious: Yes (Death, Hospitalization, Disabling, Other)
  Sender: FDA-Public Use
  Company Number: US-009507513-1301USA000745

PATIENT
  Sex: Female
  Weight: 50.34 kg

DRUGS (2)
  1. FOSAMAX [Suspect]
     Indication: OSTEOPENIA
     Dosage: UNK
     Route: 048
     Dates: start: 199602
  2. FOSAMAX [Suspect]
     Indication: OSTEOPOROSIS
     Dosage: 70 MG, QW
     Route: 048
     Dates: end: 200511

REACTIONS (64)
  - Femur fracture [Recovering/Resolving]
  - Intramedullary rod insertion [Unknown]
  - Femur fracture [Not Recovered/Not Resolved]
  - Osteonecrosis [Unknown]
  - Osteoarthritis [Unknown]
  - Nephroureterectomy [Unknown]
  - Metastases to bone [Unknown]
  - Hip arthroplasty [Unknown]
  - Haemorrhagic anaemia [Unknown]
  - Osteoporosis [Not Recovered/Not Resolved]
  - Stress fracture [Not Recovered/Not Resolved]
  - Femur fracture [Not Recovered/Not Resolved]
  - Low turnover osteopathy [Not Recovered/Not Resolved]
  - Transitional cell carcinoma [Unknown]
  - Ureteral stent insertion [Unknown]
  - Urethral cancer metastatic [Unknown]
  - Bladder cancer [Fatal]
  - Foot operation [Unknown]
  - Foot operation [Unknown]
  - Foot operation [Unknown]
  - Inguinal hernia repair [Unknown]
  - Inguinal hernia repair [Unknown]
  - Nephrectomy [Unknown]
  - Pulmonary embolism [Unknown]
  - Cerebral haemorrhage [Unknown]
  - Convulsion [Unknown]
  - Foot fracture [Unknown]
  - Lower limb fracture [Unknown]
  - Blood count abnormal [Unknown]
  - Pollakiuria [Unknown]
  - Device breakage [Unknown]
  - Fracture nonunion [Unknown]
  - Medical device removal [Unknown]
  - Upper respiratory tract infection [Unknown]
  - Intervertebral disc degeneration [Unknown]
  - Spondylolisthesis [Unknown]
  - Depression [Unknown]
  - Haemoglobin decreased [Unknown]
  - Chest pain [Unknown]
  - Nephrolithiasis [Unknown]
  - Biopsy breast [Unknown]
  - Biopsy breast [Unknown]
  - Rhinoplasty [Unknown]
  - Papule [Unknown]
  - Carotid artery disease [Unknown]
  - Postoperative wound infection [Unknown]
  - Labile blood pressure [Unknown]
  - Embolism venous [Unknown]
  - Pulmonary mass [Unknown]
  - Lung infiltration [Unknown]
  - Scoliosis [Unknown]
  - Hernia [Unknown]
  - Bone erosion [Unknown]
  - Pelvic mass [Unknown]
  - Injury [Unknown]
  - Radiotherapy [Unknown]
  - Blood pressure increased [Unknown]
  - Obsessive-compulsive disorder [Unknown]
  - Back pain [Unknown]
  - Back pain [Unknown]
  - Oedema peripheral [Unknown]
  - Pain in extremity [Unknown]
  - Musculoskeletal pain [Unknown]
  - Gastrooesophageal reflux disease [Unknown]
